FAERS Safety Report 6506826-2 (Version None)
Quarter: 2009Q4

REPORT INFORMATION
  Report Type: 
  Country: None (occurrence: None)
  Receive Date: 20091221
  Receipt Date: 20091214
  Transmission Date: 20100525
  Serious: Yes (Death)
  Sender: FDA-Public Use
  Company Number: JP-ASTRAZENECA-2009SE32701

PATIENT
  Age: 68 Year
  Sex: Female

DRUGS (7)
  1. BLOPRESS [Suspect]
     Indication: HYPERTENSION
     Route: 048
     Dates: start: 20091130, end: 20091213
  2. ACTOS [Concomitant]
     Route: 048
  3. CRESTOR [Concomitant]
     Route: 048
  4. PLETAL [Concomitant]
     Route: 048
  5. THYRADIN S [Concomitant]
     Route: 048
  6. ASPIRIN [Concomitant]
     Route: 048
  7. GASTER D [Concomitant]
     Route: 048

REACTIONS (1)
  - DEATH [None]
